FAERS Safety Report 17729916 (Version 1)
Quarter: 2020Q2

REPORT INFORMATION
  Report Type: Spontaneous
  Country: DE (occurrence: DE)
  Receive Date: 20200430
  Receipt Date: 20200430
  Transmission Date: 20200714
  Serious: Yes (Other)
  Sender: FDA-Public Use
  Company Number: DE-PFIZER INC-2020171242

PATIENT
  Age: 28 Year
  Sex: Female
  Weight: 88 kg

DRUGS (1)
  1. CYTOTEC [Suspect]
     Active Substance: MISOPROSTOL
     Indication: PROLONGED PREGNANCY
     Dosage: 3 DF (FIRST TABLET AT 8:45 A.M., SECOND TABLET AT 1:00 P.M. AND THIRD TABLET AT 5:00 P.M.)
     Route: 048
     Dates: start: 20200207, end: 20200207

REACTIONS (12)
  - Dyspnoea [Recovered/Resolved]
  - Off label use [Unknown]
  - Heart rate increased [Unknown]
  - Chills [Recovered/Resolved]
  - Product use in unapproved indication [Unknown]
  - Cardiovascular disorder [Unknown]
  - Fatigue [Recovered/Resolved]
  - Amniocentesis abnormal [Unknown]
  - Uterine tachysystole [Recovered/Resolved]
  - Cold sweat [Recovered/Resolved]
  - Abdominal pain [Recovered/Resolved]
  - Postpartum stress disorder [Unknown]

NARRATIVE: CASE EVENT DATE: 202002
